FAERS Safety Report 11646195 (Version 2)
Quarter: 2016Q2

REPORT INFORMATION
  Report Type: Spontaneous
  Country: US (occurrence: US)
  Receive Date: 20151020
  Receipt Date: 20160429
  Transmission Date: 20160815
  Serious: No
  Sender: FDA-Public Use
  Company Number: US-ROCHE-1616001

PATIENT
  Sex: Female
  Weight: 85.35 kg

DRUGS (2)
  1. ESBRIET [Suspect]
     Active Substance: PIRFENIDONE
     Indication: IDIOPATHIC PULMONARY FIBROSIS
     Dosage: 3 CAPSULES THRICE DAILY
     Route: 048
     Dates: start: 20150723
  2. ESBRIET [Suspect]
     Active Substance: PIRFENIDONE
     Dosage: 3 CAPS ORAL TID
     Route: 048
     Dates: start: 20150730, end: 20151011

REACTIONS (5)
  - Fatigue [Unknown]
  - Crohn^s disease [Unknown]
  - Skin mass [Unknown]
  - Skin ulcer [Unknown]
  - Wound [Unknown]
